FAERS Safety Report 15312660 (Version 1)
Quarter: 2018Q3

REPORT INFORMATION
  Report Type: Spontaneous
  Country: US (occurrence: US)
  Receive Date: 20180823
  Receipt Date: 20180823
  Transmission Date: 20181010
  Serious: Yes (Hospitalization)
  Sender: FDA-Public Use
  Company Number: US-FRESENIUS MEDICAL CARE RENAL THERAPIES GROUP-FMC-1808-001522

PATIENT
  Age: 71 Year
  Sex: Male
  Weight: 87.8 kg

DRUGS (15)
  1. VELPHORO [Concomitant]
     Active Substance: FERRIC OXYHYDROXIDE
  2. ONDANSETRON [Concomitant]
     Active Substance: ONDANSETRON
  3. CLONAZEPAM. [Concomitant]
     Active Substance: CLONAZEPAM
  4. INSULIN [Concomitant]
     Active Substance: INSULIN NOS
  5. PANTOPRAZOLE [Concomitant]
     Active Substance: PANTOPRAZOLE
  6. SENSIPAR [Concomitant]
     Active Substance: CINACALCET HYDROCHLORIDE
  7. DELFLEX [Suspect]
     Active Substance: CALCIUM CHLORIDE\DEXTROSE\MAGNESIUM CHLORIDE\SODIUM CHLORIDE\SODIUM LACTATE
     Indication: END STAGE RENAL DISEASE
     Route: 033
  8. PREDNISONE. [Concomitant]
     Active Substance: PREDNISONE
  9. SEVELAMER [Concomitant]
     Active Substance: SEVELAMER
  10. ATORVASTATIN [Concomitant]
     Active Substance: ATORVASTATIN
  11. PRIMIDONE. [Concomitant]
     Active Substance: PRIMIDONE
  12. TAMSULOSIN [Concomitant]
     Active Substance: TAMSULOSIN
  13. ALLOPURINOL. [Concomitant]
     Active Substance: ALLOPURINOL
  14. CARVEDILOL. [Concomitant]
     Active Substance: CARVEDILOL
  15. CLOPIDOGREL [Concomitant]
     Active Substance: CLOPIDOGREL BISULFATE

REACTIONS (3)
  - Vomiting [Recovering/Resolving]
  - Abdominal pain [Recovering/Resolving]
  - Nausea [Recovering/Resolving]

NARRATIVE: CASE EVENT DATE: 20180728
